FAERS Safety Report 5869812-1 (Version None)
Quarter: 2008Q3

REPORT INFORMATION
  Report Type: 
  Country: None (occurrence: None)
  Receive Date: 20080904
  Receipt Date: 20080826
  Transmission Date: 20090109
  Serious: Yes (Hospitalization)
  Sender: FDA-Public Use
  Company Number: US-AMGEN-US304023

PATIENT
  Sex: Male

DRUGS (5)
  1. ENBREL [Suspect]
     Indication: RHEUMATOID ARTHRITIS
     Route: 058
     Dates: start: 20030301
  2. METHOTREXATE SODIUM [Suspect]
     Route: 048
     Dates: start: 19990101
  3. ETODOLAC [Concomitant]
  4. CALCIUM WITH VITAMIN D [Concomitant]
  5. FOLIC ACID [Concomitant]

REACTIONS (2)
  - ANGINA PECTORIS [None]
  - DYSPNOEA EXERTIONAL [None]
